FAERS Safety Report 16408395 (Version 1)
Quarter: 2019Q2

REPORT INFORMATION
  Report Type: Spontaneous
  Country: CN (occurrence: CN)
  Receive Date: 20190610
  Receipt Date: 20190610
  Transmission Date: 20190711
  Serious: Yes (Other)
  Sender: FDA-Public Use
  Company Number: CN-ROCHE-2323950

PATIENT
  Age: 49 Year
  Sex: Female

DRUGS (7)
  1. TRASTUZUMAB. [Suspect]
     Active Substance: TRASTUZUMAB
     Indication: METASTASIS
     Dosage: DAY1
     Route: 065
     Dates: start: 20170614
  2. TRASTUZUMAB. [Suspect]
     Active Substance: TRASTUZUMAB
     Indication: METASTASES TO LUNG
  3. DOCETAXEL. [Concomitant]
     Active Substance: DOCETAXEL
     Dosage: DAY1
     Route: 065
     Dates: start: 20170614
  4. TRASTUZUMAB. [Suspect]
     Active Substance: TRASTUZUMAB
     Indication: METASTASES TO LIVER
  5. TRASTUZUMAB. [Suspect]
     Active Substance: TRASTUZUMAB
     Indication: METASTASES TO BONE
     Dosage: DAY1
     Route: 065
     Dates: start: 20170706
  6. TRASTUZUMAB. [Suspect]
     Active Substance: TRASTUZUMAB
     Indication: METASTASES TO SPLEEN
  7. TAMOXIFEN [Concomitant]
     Active Substance: TAMOXIFEN
     Dosage: ENDOCRINOTHERAPY
     Route: 065
     Dates: start: 20130101

REACTIONS (3)
  - Left atrial enlargement [Unknown]
  - Hepatic neoplasm [Unknown]
  - Aortic disorder [Unknown]

NARRATIVE: CASE EVENT DATE: 20171119
